FAERS Safety Report 19917077 (Version 1)
Quarter: 2021Q4

REPORT INFORMATION
  Report Type: Spontaneous
  Country: US (occurrence: US)
  Receive Date: 20211004
  Receipt Date: 20211004
  Transmission Date: 20220303
  Serious: No
  Sender: FDA-Public Use
  Company Number: US-OTSUKA-2021_015521

PATIENT

DRUGS (1)
  1. ABILIFY MAINTENA [Suspect]
     Active Substance: ARIPIPRAZOLE
     Indication: Product used for unknown indication
     Dosage: 400 MG
     Route: 030

REACTIONS (8)
  - Varicose vein [Unknown]
  - Dementia [Unknown]
  - Amnesia [Unknown]
  - Limb discomfort [Unknown]
  - Disorientation [Unknown]
  - Motor dysfunction [Unknown]
  - Confusional state [Unknown]
  - Product dispensing issue [Unknown]
